FAERS Safety Report 8833399 (Version 4)
Quarter: 2013Q2

REPORT INFORMATION
  Report Type: Spontaneous
  Country: JP (occurrence: JP)
  Receive Date: 20121010
  Receipt Date: 20130419
  Transmission Date: 20140414
  Serious: Yes (Other)
  Sender: FDA-Public Use
  Company Number: JP-JNJFOC-20121001727

PATIENT
  Age: 41 Year
  Sex: Male
  Weight: 88 kg

DRUGS (4)
  1. REMICADE [Suspect]
     Indication: PSORIASIS
     Route: 042
     Dates: start: 20100823
  2. REMICADE [Suspect]
     Indication: PSORIASIS
     Dosage: 11TH DOSE
     Route: 042
     Dates: start: 20120105
  3. REMICADE [Suspect]
     Indication: PSORIASIS
     Dosage: 12TH DOSE
     Route: 042
     Dates: start: 20120413
  4. ISCOTIN [Concomitant]
     Route: 065
     Dates: start: 20100813, end: 20101118

REACTIONS (2)
  - Lymph node tuberculosis [Recovering/Resolving]
  - Pneumonia [Recovering/Resolving]
